FAERS Safety Report 7694523-X (Version None)
Quarter: 2011Q3

REPORT INFORMATION
  Report Type: 
  Country: None (occurrence: None)
  Receive Date: 20110819
  Receipt Date: 20110816
  Transmission Date: 20111222
  Serious: Yes (Death, Other)
  Sender: FDA-Public Use
  Company Number: PHHY2011FR73791

PATIENT
  Age: 15 Year
  Sex: Female

DRUGS (10)
  1. METHYLPREDNISOLONE [Concomitant]
     Dosage: 500 MG, UNK
  2. PREDNISOLONE [Concomitant]
     Dosage: 5-10 MG/KG/DAY
  3. ANTIBIOTICS [Concomitant]
     Dosage: UNK UKN, UNK
     Route: 042
  4. MYCOPHENOLATE MOFETIL [Suspect]
     Indication: LUNG TRANSPLANT
     Dosage: 2 G/DAY
  5. METHYLPREDNISOLONE [Concomitant]
     Dosage: 500 MG, UNK
  6. PREDNISOLONE [Concomitant]
     Dosage: 1 MG/KG PER DAY
  7. COLOMYCIN [Concomitant]
     Dosage: UNK UKN, UNK
  8. CYCLOSPORINE [Suspect]
     Indication: LUNG TRANSPLANT
     Dosage: UNK UKN, UNK
     Route: 042
  9. ANTI-THYMOCYTE GLOBULIN RABBIT NOS [Concomitant]
     Dosage: UNK UKN, UNK
  10. TOBRAMYCIN [Concomitant]
     Dosage: UNK

REACTIONS (5)
  - INTESTINAL OBSTRUCTION [None]
  - BURKHOLDERIA CEPACIA COMPLEX INFECTION [None]
  - DIFFUSE LARGE B-CELL LYMPHOMA [None]
  - EPSTEIN-BARR VIRUS ASSOCIATED LYMPHOPROLIFERATIVE DISORDER [None]
  - INFECTIOUS PERITONITIS [None]
